FAERS Safety Report 25101465 (Version 1)
Quarter: 2025Q1

REPORT INFORMATION
  Report Type: Report from Study
  Country: CO (occurrence: CO)
  Receive Date: 20250320
  Receipt Date: 20250320
  Transmission Date: 20250409
  Serious: Yes (Hospitalization, Other)
  Sender: ABBVIE
  Company Number: CO-ABBVIE-6186440

PATIENT
  Sex: Male

DRUGS (1)
  1. SKYRIZI [Suspect]
     Active Substance: RISANKIZUMAB-RZAA
     Indication: Psoriasis
     Route: 058
     Dates: start: 20230810, end: 20240909

REACTIONS (3)
  - Hip fracture [Unknown]
  - Fall [Unknown]
  - Tuberculin test positive [Not Recovered/Not Resolved]

NARRATIVE: CASE EVENT DATE: 20241101
